FAERS Safety Report 4748916-0 (Version None)
Quarter: 2005Q3

REPORT INFORMATION
  Report Type: 
  Country: None (occurrence: None)
  Receive Date: 20050819
  Receipt Date: 20050808
  Transmission Date: 20060218
  Serious: Yes (Other)
  Sender: FDA-Public Use
  Company Number: 2005UW11704

PATIENT
  Age: 72 Year
  Sex: Female
  Weight: 56.7 kg

DRUGS (12)
  1. CRESTOR [Suspect]
     Indication: BLOOD CHOLESTEROL INCREASED
     Route: 048
  2. CALCIUM GLUCONATE [Concomitant]
  3. ASCORBIC ACID [Concomitant]
  4. XANAX [Concomitant]
  5. COLAZAL [Concomitant]
  6. MACROBID [Concomitant]
  7. NEXIUM [Concomitant]
     Route: 048
  8. VICODIN [Concomitant]
  9. POTASSIUM CHLORIDE [Concomitant]
  10. TRIAMTERENE AND HYDROCHLOROTHIAZIDE [Concomitant]
     Dosage: 37.5/25 MG
  11. AREIDA [Concomitant]
  12. COENZYME Q10 [Concomitant]
     Dates: start: 20050807

REACTIONS (6)
  - BLOOD POTASSIUM DECREASED [None]
  - CONSTIPATION [None]
  - FAECALOMA [None]
  - MUSCLE SPASMS [None]
  - PNEUMONIA [None]
  - RIB FRACTURE [None]
